FAERS Safety Report 11231077 (Version 2)
Quarter: 2015Q3

REPORT INFORMATION
  Report Type: Spontaneous
  Country: JP (occurrence: JP)
  Receive Date: 20150701
  Receipt Date: 20150701
  Transmission Date: 20151125
  Serious: Yes (Other)
  Sender: FDA-Public Use
  Company Number: JP-HOSPIRA-2912038

PATIENT
  Age: 64 Year
  Sex: Male
  Weight: 64.5 kg

DRUGS (3)
  1. PRECEDEX [Suspect]
     Active Substance: DEXMEDETOMIDINE HYDROCHLORIDE
     Indication: SEDATIVE THERAPY
     Dosage: 0.35 MCG/KG/HR
     Route: 042
     Dates: start: 20140901, end: 20140901
  2. PRECEDEX [Suspect]
     Active Substance: DEXMEDETOMIDINE HYDROCHLORIDE
     Indication: SEDATIVE THERAPY
     Dosage: 0.35 MCG/KG/HR
     Route: 042
     Dates: start: 20140901, end: 20140901
  3. LIDOCAINE. [Concomitant]
     Active Substance: LIDOCAINE
     Indication: INFILTRATION ANAESTHESIA
     Dosage: SUBTENON
     Dates: start: 20140901

REACTIONS (2)
  - Heart rate decreased [Recovered/Resolved]
  - Restlessness [Recovered/Resolved]

NARRATIVE: CASE EVENT DATE: 20140901
